FAERS Safety Report 9867532 (Version 5)
Quarter: 2014Q2

REPORT INFORMATION
  Report Type: Report from Study
  Country: CA (occurrence: CA)
  Receive Date: 20140204
  Receipt Date: 20140427
  Transmission Date: 20141212
  Serious: Yes (Other)
  Sender: FDA-Public Use
  Company Number: CA-BRISTOL-MYERS SQUIBB COMPANY-19873306

PATIENT
  Age: 54 Year
  Sex: Female

DRUGS (11)
  1. ORENCIA [Suspect]
     Indication: RHEUMATOID ARTHRITIS
     Dosage: 1 DF=1000 UNITS NOS
     Dates: start: 20121115
  2. RAMIPRIL [Concomitant]
  3. RABEPRAZOLE [Concomitant]
  4. CIPRALEX [Concomitant]
  5. ACTONEL [Concomitant]
  6. ATORVASTATIN [Concomitant]
  7. HYDROCHLOROTHIAZIDE [Concomitant]
  8. EZETROL [Concomitant]
  9. METHOTREXATE [Concomitant]
  10. NAPROXEN [Concomitant]
  11. PREDNISONE [Concomitant]

REACTIONS (7)
  - Pneumonia [Unknown]
  - Rib fracture [Unknown]
  - Bronchitis [Unknown]
  - Cystitis [Unknown]
  - Oral candidiasis [Not Recovered/Not Resolved]
  - Fibromyalgia [Unknown]
  - Stomatitis [Unknown]
